FAERS Safety Report 18574831 (Version 1)
Quarter: 2020Q4

REPORT INFORMATION
  Report Type: Other
  Country: PL (occurrence: PL)
  Receive Date: 20201203
  Receipt Date: 20201203
  Transmission Date: 20210114
  Serious: Yes (Hospitalization, Other)
  Sender: FDA-Public Use
  Company Number: PL-MACLEODS PHARMACEUTICALS US LTD-MAC2020029249

PATIENT

DRUGS (19)
  1. WARFARIN [Suspect]
     Active Substance: WARFARIN
     Indication: PRODUCT USED FOR UNKNOWN INDICATION
     Dosage: (AS PER INR)
     Route: 065
  2. VALSARTAN 160 MG [Suspect]
     Active Substance: VALSARTAN
     Indication: PRODUCT USED FOR UNKNOWN INDICATION
     Dosage: 160 MILLIGRAM, QD
     Route: 065
  3. VALSARTAN/SACUBITRIL [Suspect]
     Active Substance: SACUBITRIL\VALSARTAN
     Dosage: 100 MILLIGRAM, BID (49/51 MG)
     Route: 065
  4. VALSARTAN/SACUBITRIL [Suspect]
     Active Substance: SACUBITRIL\VALSARTAN
     Dosage: 100 MILLIGRAM, BID (49/51 MG)
     Route: 065
  5. POTASSIUM [Concomitant]
     Active Substance: POTASSIUM
     Indication: PRODUCT USED FOR UNKNOWN INDICATION
     Dosage: UNK
     Route: 065
  6. APIXABAN [Suspect]
     Active Substance: APIXABAN
     Indication: PRODUCT USED FOR UNKNOWN INDICATION
     Dosage: UNK
     Route: 065
  7. TORASEMIDE [Suspect]
     Active Substance: TORSEMIDE
     Indication: PRODUCT USED FOR UNKNOWN INDICATION
     Dosage: 10 MILLIGRAM, BID
     Route: 065
  8. TORASEMIDE [Suspect]
     Active Substance: TORSEMIDE
     Dosage: UNK UNK, BID (20-10-0)
     Route: 065
  9. AMIODARONE [Suspect]
     Active Substance: AMIODARONE
     Indication: PRODUCT USED FOR UNKNOWN INDICATION
     Dosage: 200 MILLIGRAM, QD
     Route: 042
  10. VALSARTAN/SACUBITRIL [Suspect]
     Active Substance: SACUBITRIL\VALSARTAN
     Dosage: 200 MILLIGRAM, BID (97/103)
     Route: 065
  11. ATORVASTATIN 20 MG [Suspect]
     Active Substance: ATORVASTATIN
     Indication: PRODUCT USED FOR UNKNOWN INDICATION
     Dosage: 20 MILLIGRAM, QD
     Route: 065
  12. RIVAROXABAN?20 MG [Suspect]
     Active Substance: RIVAROXABAN
     Indication: PRODUCT USED FOR UNKNOWN INDICATION
     Dosage: 20 MILLIGRAM, QD
     Route: 065
  13. EPLERENONE. [Suspect]
     Active Substance: EPLERENONE
     Indication: PRODUCT USED FOR UNKNOWN INDICATION
     Dosage: 50 MILLIGRAM, QD ((TREATMENT DISCONTINUED))
     Route: 065
  14. VALSARTAN/SACUBITRIL [Suspect]
     Active Substance: SACUBITRIL\VALSARTAN
     Dosage: 50 MILLIGRAM, BID ((24/26 MG))
     Route: 065
  15. METOPROLOL. [Suspect]
     Active Substance: METOPROLOL
     Indication: PRODUCT USED FOR UNKNOWN INDICATION
     Dosage: 47.5 MILLIGRAM, QD
     Route: 065
  16. TORASEMIDE [Suspect]
     Active Substance: TORSEMIDE
     Dosage: UNK UNK, BID (DIURETICS HAS BEEN REDUCED, 10-10-0)
     Route: 065
  17. PANTOPRAZOLE SODIUM. [Suspect]
     Active Substance: PANTOPRAZOLE SODIUM
     Indication: PRODUCT USED FOR UNKNOWN INDICATION
     Dosage: 20 MILLIGRAM, QD
     Route: 065
  18. EPLERENONE. [Suspect]
     Active Substance: EPLERENONE
     Dosage: 50 MILLIGRAM, QD
     Route: 065
  19. VALSARTAN/SACUBITRIL [Suspect]
     Active Substance: SACUBITRIL\VALSARTAN
     Indication: PRODUCT USED FOR UNKNOWN INDICATION
     Dosage: 200 MILLIGRAM, BID (97/103)
     Route: 065

REACTIONS (11)
  - Cardiac failure congestive [Unknown]
  - Blood cholesterol abnormal [Unknown]
  - Off label use [Unknown]
  - Blood creatinine increased [Unknown]
  - Diarrhoea [Recovered/Resolved]
  - Aortic valve incompetence [Unknown]
  - Glomerular filtration rate decreased [Unknown]
  - Oedema peripheral [Recovered/Resolved]
  - Weight increased [Unknown]
  - Heart rate increased [Recovered/Resolved]
  - Inappropriate schedule of product administration [Unknown]
